FAERS Safety Report 14393925 (Version 18)
Quarter: 2018Q3

REPORT INFORMATION
  Report Type: Spontaneous
  Country: CA (occurrence: CA)
  Receive Date: 20180116
  Receipt Date: 20180914
  Transmission Date: 20181010
  Serious: Yes (Hospitalization, Other)
  Sender: FDA-Public Use
  Company Number: CA-CELLTRION INC.-2017CA011161

PATIENT

DRUGS (16)
  1. INFLECTRA [Suspect]
     Active Substance: INFLIXIMAB-DYYB
     Indication: CROHN^S DISEASE
     Dosage: 290 MG, EVERY 0,2,6, WEEKS, THEN EVERY 8 WEEKS
     Route: 042
     Dates: start: 20170705, end: 20171122
  2. INFLECTRA [Suspect]
     Active Substance: INFLIXIMAB-DYYB
     Dosage: 12.5 MG/KG, EVERY 4 WEEKS
     Route: 042
  3. INFLECTRA [Suspect]
     Active Substance: INFLIXIMAB-DYYB
     Dosage: 290 MG, CYCLIC EVERY 0,2,6, WEEKS, THEN EVERY 8 WEEKS
     Route: 042
     Dates: start: 20171122, end: 20171122
  4. INFLECTRA [Suspect]
     Active Substance: INFLIXIMAB-DYYB
     Dosage: 700 MG, CYCLIC EVERY 4 WEEKS
     Route: 042
     Dates: start: 20180409
  5. NOVORAPID [Concomitant]
     Active Substance: INSULIN ASPART
     Dosage: UP TO 10 UNITS, DAILY (IN THE MORNING)
  6. LEVEMIR [Concomitant]
     Active Substance: INSULIN DETEMIR
     Dosage: UP TO 10 UNITS, DAILY (AT BEDTIME)
     Route: 065
  7. HYDROCORTISONE. [Concomitant]
     Active Substance: HYDROCORTISONE
     Dosage: UNK
     Dates: start: 20180716
  8. INFLECTRA [Suspect]
     Active Substance: INFLIXIMAB-DYYB
     Dosage: 10 MG/KG, CYCLIC EVERY 4 WEEKS
     Route: 042
  9. DIPHENHYDRAMINE. [Concomitant]
     Active Substance: DIPHENHYDRAMINE
     Dosage: UNK
     Dates: start: 20180716
  10. SYNTHROID [Concomitant]
     Active Substance: LEVOTHYROXINE SODIUM
     Dosage: 0.088 MG, 1X/DAY (IN THE MORNING)
     Route: 048
     Dates: start: 2015
  11. INFLECTRA [Suspect]
     Active Substance: INFLIXIMAB-DYYB
     Dosage: 700 MG, CYCLIC EVERY 4 WEEKS
     Route: 042
     Dates: start: 20180308
  12. METHOTREXATE SODIUM. [Suspect]
     Active Substance: METHOTREXATE SODIUM
     Indication: PRODUCT USED FOR UNKNOWN INDICATION
     Dosage: 3 DF, 1/WEEK
     Route: 048
     Dates: start: 20170705
  13. MELATONIN [Concomitant]
     Active Substance: MELATONIN
     Dosage: 5 MG, 1X/DAY (AT NIGHT)
     Route: 048
     Dates: start: 20170405
  14. INFLECTRA [Suspect]
     Active Substance: INFLIXIMAB-DYYB
     Dosage: 700 MG, CYCLIC EVERY 4 WEEKS
     Route: 042
     Dates: start: 20180507
  15. INFLECTRA [Suspect]
     Active Substance: INFLIXIMAB-DYYB
     Dosage: 700 MG, CYCLIC EVERY 4 WEEKS
     Route: 042
     Dates: start: 20180618
  16. INFLECTRA [Suspect]
     Active Substance: INFLIXIMAB-DYYB
     Dosage: 700 MG, CYCLIC EVERY 4 WEEKS
     Route: 042
     Dates: start: 20180716

REACTIONS (26)
  - Arthralgia [Unknown]
  - Memory impairment [Not Recovered/Not Resolved]
  - Chills [Not Recovered/Not Resolved]
  - Pulmonary thrombosis [Unknown]
  - Uveitis [Unknown]
  - Product use issue [Unknown]
  - Confusional state [Not Recovered/Not Resolved]
  - Feeling cold [Recovered/Resolved]
  - Rhinorrhoea [Not Recovered/Not Resolved]
  - Anal fissure [Unknown]
  - Musculoskeletal pain [Unknown]
  - Dizziness [Not Recovered/Not Resolved]
  - Neck pain [Unknown]
  - Blood pressure fluctuation [Unknown]
  - Diarrhoea haemorrhagic [Unknown]
  - Cough [Not Recovered/Not Resolved]
  - Anaemia [Unknown]
  - Influenza [Not Recovered/Not Resolved]
  - Back pain [Recovered/Resolved]
  - Diarrhoea [Unknown]
  - Pyrexia [Not Recovered/Not Resolved]
  - Bone pain [Unknown]
  - Dyspnoea [Not Recovered/Not Resolved]
  - Condition aggravated [Not Recovered/Not Resolved]
  - Malaise [Not Recovered/Not Resolved]
  - Pain [Not Recovered/Not Resolved]

NARRATIVE: CASE EVENT DATE: 201610
